FAERS Safety Report 4297724-6 (Version None)
Quarter: 2004Q1

REPORT INFORMATION
  Report Type: 
  Country: None (occurrence: None)
  Receive Date: 20040126
  Receipt Date: 20030918
  Transmission Date: 20041129
  Serious: No
  Sender: FDA-Public Use
  Company Number: USA030947712

PATIENT
  Age: 24 Year
  Sex: Female
  Weight: 48 kg

DRUGS (1)
  1. STRATTERA [Suspect]
     Indication: ATTENTION DEFICIT/HYPERACTIVITY DISORDER
     Dosage: 40 MG/DAY
     Dates: start: 20030425

REACTIONS (3)
  - DISORIENTATION [None]
  - FEELING ABNORMAL [None]
  - NAUSEA [None]
